FAERS Safety Report 6132262-7 (Version None)
Quarter: 2009Q1

REPORT INFORMATION
  Report Type: 
  Country: None (occurrence: None)
  Receive Date: 20090325
  Receipt Date: 20090318
  Transmission Date: 20090719
  Serious: No
  Sender: FDA-Public Use
  Company Number: CZ-AVENTIS-200819538GDDC

PATIENT
  Age: 32 Year
  Sex: Female

DRUGS (1)
  1. ARAVA [Suspect]
     Route: 048
     Dates: start: 20050101, end: 20071031

REACTIONS (1)
  - DRUG EXPOSURE DURING PREGNANCY [None]
